FAERS Safety Report 8459400 (Version 7)
Quarter: 2015Q1

REPORT INFORMATION
  Report Type: Spontaneous
  Country: US (occurrence: US)
  Receive Date: 20120314
  Receipt Date: 20150130
  Transmission Date: 20150721
  Serious: No
  Sender: FDA-Public Use
  Company Number: US-ASTRAZENECA-2011SE49397

PATIENT
  Age: 76 Year
  Sex: Female

DRUGS (15)
  1. TOPROL XL [Suspect]
     Active Substance: METOPROLOL SUCCINATE
     Indication: THYROID NEOPLASM
     Dosage: 150 MG
     Route: 048
  2. TOPROL XL [Suspect]
     Active Substance: METOPROLOL SUCCINATE
     Indication: THYROID NEOPLASM
     Dosage: CUTTING PRESCRIPTIONS IN HALF
     Route: 048
  3. TOPROL XL [Suspect]
     Active Substance: METOPROLOL SUCCINATE
     Indication: BLOOD PRESSURE ABNORMAL
     Route: 048
  4. TOPROL XL [Suspect]
     Active Substance: METOPROLOL SUCCINATE
     Indication: BLOOD PRESSURE ABNORMAL
     Dosage: 150 MG
     Route: 048
  5. TOPROL XL [Suspect]
     Active Substance: METOPROLOL SUCCINATE
     Indication: BLOOD PRESSURE ABNORMAL
     Dosage: CUTTING PRESCRIPTIONS IN HALF
     Route: 048
  6. TOPROL XL [Suspect]
     Active Substance: METOPROLOL SUCCINATE
     Indication: BLOOD PRESSURE ABNORMAL
     Dosage: DOSE 50MG, ONE TABLETS A DAY
     Route: 048
  7. NOVALOG [Concomitant]
  8. TOPROL XL [Suspect]
     Active Substance: METOPROLOL SUCCINATE
     Indication: BLOOD PRESSURE ABNORMAL
     Route: 048
  9. TOPROL XL [Suspect]
     Active Substance: METOPROLOL SUCCINATE
     Indication: THYROID NEOPLASM
     Dosage: DOSE 50MG, TAKE TWO TABLETS A DAY
     Route: 048
  10. TOPROL XL [Suspect]
     Active Substance: METOPROLOL SUCCINATE
     Indication: THYROID NEOPLASM
     Route: 048
  11. TOPROL XL [Suspect]
     Active Substance: METOPROLOL SUCCINATE
     Indication: BLOOD PRESSURE ABNORMAL
     Dosage: DOSE 50MG, TAKE TWO TABLETS A DAY
     Route: 048
  12. TOPROL XL [Suspect]
     Active Substance: METOPROLOL SUCCINATE
     Indication: THYROID NEOPLASM
     Dosage: DOSE 50MG, ONE TABLETS A DAY
     Route: 048
  13. SPIRONOLACTONE. [Concomitant]
     Active Substance: SPIRONOLACTONE
  14. TOPROL XL [Suspect]
     Active Substance: METOPROLOL SUCCINATE
     Indication: THYROID NEOPLASM
     Route: 048
  15. COZAAR [Concomitant]
     Active Substance: LOSARTAN POTASSIUM

REACTIONS (15)
  - Malaise [Unknown]
  - Visual acuity reduced [Unknown]
  - Blood cortisol increased [Unknown]
  - Fatigue [Unknown]
  - Intentional product misuse [Unknown]
  - Chest pain [Unknown]
  - Influenza [Unknown]
  - Body height decreased [Unknown]
  - Blood pressure inadequately controlled [Unknown]
  - Drug effect incomplete [Unknown]
  - Chest discomfort [Unknown]
  - Off label use [Unknown]
  - Stress [Unknown]
  - Sleep disorder due to general medical condition, insomnia type [Unknown]
  - Hypertension [Unknown]
